FAERS Safety Report 17363260 (Version 1)
Quarter: 2020Q1

REPORT INFORMATION
  Report Type: Spontaneous
  Country: TW (occurrence: TW)
  Receive Date: 20200203
  Receipt Date: 20200203
  Transmission Date: 20200409
  Serious: Yes (Other)
  Sender: FDA-Public Use
  Company Number: TW-BAUSCH-BL-2020-002133

PATIENT
  Age: 5 Decade
  Sex: Male

DRUGS (5)
  1. PREDNISOLONE. [Suspect]
     Active Substance: PREDNISOLONE
     Indication: EVANS SYNDROME
     Dosage: FOR MORE THAN 10 YEARS
     Route: 065
  2. MYCOPHENOLATE [Suspect]
     Active Substance: MYCOPHENOLIC ACID
     Indication: EVANS SYNDROME
     Route: 065
  3. AZATHIOPRINE. [Suspect]
     Active Substance: AZATHIOPRINE
     Indication: EVANS SYNDROME
     Route: 065
  4. ELTROMBOPAG [Concomitant]
     Active Substance: ELTROMBOPAG
     Indication: EVANS SYNDROME
     Dosage: FOR MORE THAN 10 YEARS
     Route: 048
  5. DAPSONE. [Concomitant]
     Active Substance: DAPSONE
     Indication: EVANS SYNDROME

REACTIONS (1)
  - Fungal skin infection [Recovered/Resolved]
